FAERS Safety Report 5157679-9 (Version None)
Quarter: 2006Q4

REPORT INFORMATION
  Report Type: 
  Country: None (occurrence: None)
  Receive Date: 20061127
  Receipt Date: 20061025
  Transmission Date: 20070319
  Serious: Yes (Life-Threatening, Hospitalization, Disabling)
  Sender: FDA-Public Use
  Company Number: 2006PK02158

PATIENT
  Age: 15562 Day
  Sex: Male
  Weight: 97 kg

DRUGS (2)
  1. SEROQUEL [Suspect]
     Indication: SCHIZOPHRENIA
     Route: 048
     Dates: start: 20060601
  2. LEVIUM [Concomitant]
     Indication: SCHIZOPHRENIA
     Route: 048
     Dates: start: 20060601

REACTIONS (1)
  - ISCHAEMIC STROKE [None]
